FAERS Safety Report 23362615 (Version 1)
Quarter: 2024Q1

REPORT INFORMATION
  Report Type: Spontaneous
  Country: US (occurrence: US)
  Receive Date: 20240103
  Receipt Date: 20240103
  Transmission Date: 20240410
  Serious: No
  Sender: FDA-Public Use
  Company Number: US-Calliditas-2023CAL01695

PATIENT
  Age: 26 Year
  Sex: Female
  Weight: 124 kg

DRUGS (1)
  1. TARPEYO [Suspect]
     Active Substance: BUDESONIDE
     Indication: IgA nephropathy
     Route: 048
     Dates: start: 20231112

REACTIONS (4)
  - Acne [Unknown]
  - Hair colour changes [Unknown]
  - Sinusitis [Unknown]
  - Nasopharyngitis [Unknown]
